FAERS Safety Report 14037093 (Version 2)
Quarter: 2017Q4

REPORT INFORMATION
  Report Type: Spontaneous
  Country: BR (occurrence: BR)
  Receive Date: 20171004
  Receipt Date: 20171010
  Transmission Date: 20180321
  Serious: Yes (Hospitalization, Other)
  Sender: FDA-Public Use
  Company Number: BR-AMGEN-BRASP2016032552

PATIENT
  Age: 45 Year
  Sex: Female
  Weight: 58 kg

DRUGS (2)
  1. ENBREL [Suspect]
     Active Substance: ETANERCEPT
     Indication: PSORIATIC ARTHROPATHY
     Dosage: 50 MG, 1X/WEEK
     Route: 065
     Dates: start: 2013
  2. ENBREL [Suspect]
     Active Substance: ETANERCEPT
     Dosage: 50 MG, EVERY TWO WEEKS
     Route: 065
     Dates: start: 201703

REACTIONS (26)
  - Product use issue [Unknown]
  - Gait inability [Unknown]
  - Pain in extremity [Unknown]
  - Haematemesis [Unknown]
  - Drug dose omission [Unknown]
  - Loss of personal independence in daily activities [Unknown]
  - Pyrexia [Unknown]
  - Dyspnoea [Unknown]
  - Gait disturbance [Unknown]
  - Secretion discharge [Unknown]
  - Nephrolithiasis [Unknown]
  - Condition aggravated [Unknown]
  - Arthropathy [Unknown]
  - Stress [Unknown]
  - Fatigue [Not Recovered/Not Resolved]
  - Hypokinesia [Unknown]
  - Feeding disorder [Unknown]
  - Gastrointestinal disorder [Recovering/Resolving]
  - Musculoskeletal discomfort [Unknown]
  - Pain [Not Recovered/Not Resolved]
  - Tearfulness [Unknown]
  - Arthralgia [Not Recovered/Not Resolved]
  - Joint swelling [Unknown]
  - Abdominal discomfort [Unknown]
  - Pneumonia [Unknown]
  - Lymphadenitis bacterial [Unknown]

NARRATIVE: CASE EVENT DATE: 201602
